FAERS Safety Report 19323783 (Version 1)
Quarter: 2021Q2

REPORT INFORMATION
  Report Type: Spontaneous
  Country: US (occurrence: US)
  Receive Date: 20210528
  Receipt Date: 20210528
  Transmission Date: 20210717
  Serious: Yes (Other)
  Sender: FDA-Public Use
  Company Number: US-PURDUE-USA-2020-0219297

PATIENT
  Age: 62 Year

DRUGS (3)
  1. OXYCONTIN [Suspect]
     Active Substance: OXYCODONE HYDROCHLORIDE
     Indication: GASTRIC DISORDER
     Dosage: UNK
     Route: 048
     Dates: start: 1998, end: 2015
  2. DOLOPHINE [Suspect]
     Active Substance: METHADONE HYDROCHLORIDE
     Indication: GASTRIC DISORDER
     Dosage: UNK
     Route: 065
     Dates: start: 1998, end: 2015
  3. NARCODORM [Suspect]
     Active Substance: ENIBOMAL SODIUM
     Indication: GASTRIC DISORDER
     Dosage: 5 MG, QID
     Route: 065
     Dates: start: 1998

REACTIONS (7)
  - Drug dependence [Unknown]
  - Pain [Unknown]
  - Cerebral disorder [Unknown]
  - Emotional distress [Unknown]
  - Drug withdrawal syndrome [Unknown]
  - Post-traumatic stress disorder [Unknown]
  - Anxiety [Unknown]
